FAERS Safety Report 8796036 (Version 1)
Quarter: 2012Q4

REPORT INFORMATION
  Report Type: 
  Country: US (occurrence: US)
  Receive Date: 20120920
  Receipt Date: 20120920
  Transmission Date: 20130627
  Serious: Yes (Other)
  Sender: FDA-Public Use
  Company Number: US-CELGENEUS-163-21660-12091326

PATIENT

DRUGS (3)
  1. ABRAXANE [Suspect]
     Indication: PERITONEAL CARCINOMA
     Dosage: 100 milligram/sq. meter
     Route: 041
  2. BEVACIZUMAB [Suspect]
     Indication: PERITONEAL CARCINOMA
     Dosage: 10 milligram/kilogram
     Route: 065
  3. BEVACIZUMAB [Suspect]
     Indication: OVARIAN CANCER

REACTIONS (3)
  - Gastrointestinal disorder [Unknown]
  - Neutropenia [Unknown]
  - Hypertension [Unknown]
